FAERS Safety Report 6634693-5 (Version None)
Quarter: 2010Q1

REPORT INFORMATION
  Report Type: 
  Country: None (occurrence: None)
  Receive Date: 20100315
  Receipt Date: 20100115
  Transmission Date: 20100710
  Serious: Yes (Hospitalization, Other)
  Sender: FDA-Public Use
  Company Number: US-JNJFOC-20091102313

PATIENT
  Sex: Female

DRUGS (2)
  1. LEVAQUIN [Suspect]
     Indication: SINUSITIS
     Route: 048
  2. METHYLPREDNISOLONE [Suspect]
     Indication: SINUSITIS
     Route: 065

REACTIONS (2)
  - FOOT DEFORMITY [None]
  - TENDON RUPTURE [None]
